FAERS Safety Report 10336198 (Version 1)
Quarter: 2014Q3

REPORT INFORMATION
  Report Type: Other
  Country: DK (occurrence: AU)
  Receive Date: 20140723
  Receipt Date: 20140723
  Transmission Date: 20150326
  Serious: Yes (Hospitalization)
  Sender: FDA-Public Use
  Company Number: AU-FRI-1000069178

PATIENT
  Age: 25 Year
  Sex: Male
  Weight: 75 kg

DRUGS (5)
  1. CITALOPRAM [Suspect]
     Active Substance: CITALOPRAM HYDROBROMIDE
     Dosage: OVERDOSE: 1.120 MG CITALOPRAM
  2. CODEINE [Suspect]
     Active Substance: CODEINE
  3. PARACETAMOL [Suspect]
     Active Substance: ACETAMINOPHEN
  4. QUETIAPINE [Suspect]
     Active Substance: QUETIAPINE
  5. CLONAZEPAM. [Suspect]
     Active Substance: CLONAZEPAM

REACTIONS (2)
  - Overdose [Unknown]
  - Depressed level of consciousness [Unknown]
